FAERS Safety Report 8462129-0 (Version None)
Quarter: 2012Q2

REPORT INFORMATION
  Report Type: 
  Country: None (occurrence: None)
  Receive Date: 20120625
  Receipt Date: 20120615
  Transmission Date: 20120825
  Serious: Yes (Other)
  Sender: FDA-Public Use
  Company Number: US-JNJFOC-20120608294

PATIENT
  Age: 56 Year
  Sex: Male

DRUGS (8)
  1. ADVAIR DISKUS 100/50 [Concomitant]
  2. INSULIN [Concomitant]
  3. PAIN MEDICATION [Concomitant]
     Indication: PAIN
  4. GABAPENTIN [Concomitant]
  5. LISINOPRIL [Concomitant]
  6. WELLBUTRIN [Concomitant]
  7. XARELTO [Suspect]
     Indication: KNEE ARTHROPLASTY
     Route: 048
  8. XARELTO [Suspect]
     Indication: THROMBOSIS PROPHYLAXIS
     Route: 048

REACTIONS (1)
  - THROMBOCYTOPENIA [None]
